FAERS Safety Report 8702714 (Version 2)
Quarter: 2013Q3

REPORT INFORMATION
  Report Type: Spontaneous
  Country: US (occurrence: US)
  Receive Date: 20120803
  Receipt Date: 20130920
  Transmission Date: 20140515
  Serious: Yes (Disabling, Other)
  Sender: FDA-Public Use
  Company Number: US-PURDUE-USA-2012-0090804

PATIENT
  Age: 27 Year
  Sex: Female

DRUGS (3)
  1. OXYCONTIN (NDA 22-272) [Suspect]
  2. HEROIN [Suspect]
     Indication: PRODUCT USED FOR UNKNOWN INDICATION
  3. ALCOHOL [Suspect]
     Indication: SUBSTANCE USE
     Route: 048

REACTIONS (6)
  - Overdose [Recovered/Resolved with Sequelae]
  - Brain injury [Not Recovered/Not Resolved]
  - Communication disorder [Not Recovered/Not Resolved]
  - Paralysis [Not Recovered/Not Resolved]
  - Apallic syndrome [Not Recovered/Not Resolved]
  - Euphoric mood [Unknown]
